FAERS Safety Report 18148785 (Version 45)
Quarter: 2025Q2

REPORT INFORMATION
  Report Type: Report from Study
  Country: US (occurrence: US)
  Receive Date: 20200814
  Receipt Date: 20250609
  Transmission Date: 20250717
  Serious: Yes (Hospitalization)
  Sender: TAKEDA
  Company Number: US-SHIRE-US202025901

PATIENT
  Age: 75 Year
  Sex: Female
  Weight: 89 kg

DRUGS (51)
  1. HUMAN IMMUNOGLOBULIN G\HYALURONIDASE RECOMBINANT HUMAN [Suspect]
     Active Substance: HUMAN IMMUNOGLOBULIN G\HYALURONIDASE (HUMAN RECOMBINANT)
     Indication: Primary immunodeficiency syndrome
     Dosage: 35 GRAM, Q4WEEKS
     Dates: start: 20190119
  2. HUMAN IMMUNOGLOBULIN G\HYALURONIDASE RECOMBINANT HUMAN [Suspect]
     Active Substance: HUMAN IMMUNOGLOBULIN G\HYALURONIDASE (HUMAN RECOMBINANT)
     Indication: Immunodeficiency common variable
     Dosage: 50 GRAM, Q4WEEKS
     Dates: start: 20190707
  3. HUMAN IMMUNOGLOBULIN G\HYALURONIDASE RECOMBINANT HUMAN [Suspect]
     Active Substance: HUMAN IMMUNOGLOBULIN G\HYALURONIDASE (HUMAN RECOMBINANT)
     Dosage: 35 GRAM, Q4WEEKS
  4. HUMAN IMMUNOGLOBULIN G\HYALURONIDASE RECOMBINANT HUMAN [Suspect]
     Active Substance: HUMAN IMMUNOGLOBULIN G\HYALURONIDASE (HUMAN RECOMBINANT)
     Dosage: 50 GRAM, MONTHLY
  5. HUMAN IMMUNOGLOBULIN G\HYALURONIDASE RECOMBINANT HUMAN [Suspect]
     Active Substance: HUMAN IMMUNOGLOBULIN G\HYALURONIDASE (HUMAN RECOMBINANT)
     Dosage: 50 GRAM, Q4WEEKS
  6. HUMAN IMMUNOGLOBULIN G\HYALURONIDASE RECOMBINANT HUMAN [Suspect]
     Active Substance: HUMAN IMMUNOGLOBULIN G\HYALURONIDASE (HUMAN RECOMBINANT)
  7. SODIUM CHLORIDE [Concomitant]
     Active Substance: SODIUM CHLORIDE
  8. EPINEPHRINE [Concomitant]
     Active Substance: EPINEPHRINE
  9. ACETAMINOPHEN [Concomitant]
     Active Substance: ACETAMINOPHEN
  10. DILTIAZEM [Concomitant]
     Active Substance: DILTIAZEM
  11. SPIRIVA RESPIMAT [Concomitant]
     Active Substance: TIOTROPIUM BROMIDE
  12. TYLENOL EXTRA STRENGTH [Concomitant]
     Active Substance: ACETAMINOPHEN
  13. NEXIUM [Concomitant]
     Active Substance: ESOMEPRAZOLE MAGNESIUM
  14. BYSTOLIC [Concomitant]
     Active Substance: NEBIVOLOL HYDROCHLORIDE
  15. HYDROCHLOROTHIAZIDE [Concomitant]
     Active Substance: HYDROCHLOROTHIAZIDE
  16. LIDOCAINE [Concomitant]
     Active Substance: LIDOCAINE
  17. CETIRIZINE HYDROCHLORIDE [Concomitant]
     Active Substance: CETIRIZINE HYDROCHLORIDE
  18. IRBESARTAN [Concomitant]
     Active Substance: IRBESARTAN
  19. DIPHENHYDRAMINE [Concomitant]
     Active Substance: DIPHENHYDRAMINE
  20. ASPIRIN [Concomitant]
     Active Substance: ASPIRIN
  21. SYMBICORT [Concomitant]
     Active Substance: BUDESONIDE\FORMOTEROL FUMARATE DIHYDRATE
  22. AMPICILLIN TRIHYDRATE [Concomitant]
     Active Substance: AMPICILLIN TRIHYDRATE
  23. ASCORBIC ACID\CRANBERRY [Concomitant]
     Active Substance: ASCORBIC ACID\CRANBERRY
  24. CELEBREX [Concomitant]
     Active Substance: CELECOXIB
  25. VITAMIN B12 [Concomitant]
     Active Substance: CYANOCOBALAMIN
  26. PRAVASTATIN SODIUM [Concomitant]
     Active Substance: PRAVASTATIN SODIUM
  27. OMEPRAZOLE [Concomitant]
     Active Substance: OMEPRAZOLE
  28. ALBUTEROL SULFATE [Concomitant]
     Active Substance: ALBUTEROL SULFATE
  29. TYLENOL [Concomitant]
     Active Substance: ACETAMINOPHEN
  30. VENTOLIN HFA [Concomitant]
     Active Substance: ALBUTEROL SULFATE
  31. ROSUVASTATIN [Concomitant]
     Active Substance: ROSUVASTATIN
  32. NITROLINGUAL [Concomitant]
     Active Substance: NITROGLYCERIN
  33. OXYGEN [Concomitant]
     Active Substance: OXYGEN
  34. DICYCLOMINE [Concomitant]
     Active Substance: DICYCLOMINE HYDROCHLORIDE
  35. PEPCID [Concomitant]
     Active Substance: FAMOTIDINE
  36. CONSTULOSE [Concomitant]
     Active Substance: LACTULOSE
  37. AMLODIPINE [Concomitant]
     Active Substance: AMLODIPINE BESYLATE
  38. HEPARIN [Concomitant]
     Active Substance: HEPARIN SODIUM
  39. FLOMAX [Concomitant]
     Active Substance: TAMSULOSIN HYDROCHLORIDE
  40. SPIRIVA [Concomitant]
     Active Substance: TIOTROPIUM BROMIDE MONOHYDRATE
  41. SODIUM CHLORIDE [Concomitant]
     Active Substance: SODIUM CHLORIDE
  42. ARALAST [Concomitant]
     Active Substance: .ALPHA.1-PROTEINASE INHIBITOR HUMAN
  43. LISINOPRIL [Concomitant]
     Active Substance: LISINOPRIL
  44. ELIQUIS [Concomitant]
     Active Substance: APIXABAN
  45. SINGULAIR [Concomitant]
     Active Substance: MONTELUKAST SODIUM
  46. PROAIR HFA [Concomitant]
     Active Substance: ALBUTEROL SULFATE
  47. VITAMIN D3 [Concomitant]
     Active Substance: CHOLECALCIFEROL
  48. DIPHENHYDRAMINE HYDROCHLORIDE [Concomitant]
     Active Substance: DIPHENHYDRAMINE HYDROCHLORIDE
  49. VITAMIN B [Concomitant]
     Active Substance: VITAMIN B
  50. CETIRIZINE [Concomitant]
     Active Substance: CETIRIZINE HYDROCHLORIDE
  51. SALINE [Concomitant]
     Active Substance: SODIUM CHLORIDE

REACTIONS (36)
  - COVID-19 [Recovered/Resolved]
  - Asthenia [Unknown]
  - Infusion related reaction [Unknown]
  - Fall [Unknown]
  - Respiratory syncytial virus infection [Unknown]
  - Tooth impacted [Unknown]
  - Sinusitis [Unknown]
  - Upper respiratory tract infection [Unknown]
  - Contusion [Unknown]
  - Injection site bruising [Unknown]
  - Laryngitis [Unknown]
  - Bronchitis [Unknown]
  - Tooth disorder [Unknown]
  - Tooth infection [Unknown]
  - Nasopharyngitis [Unknown]
  - Red blood cell sedimentation rate increased [Unknown]
  - Illness [Unknown]
  - Hangover [Unknown]
  - Thermal burn [Unknown]
  - Drug hypersensitivity [Unknown]
  - Head discomfort [Unknown]
  - Ear infection [Unknown]
  - Nasal congestion [Unknown]
  - Asthma [Unknown]
  - Cough [Recovering/Resolving]
  - Muscle spasms [Unknown]
  - Injection site induration [Unknown]
  - Pain in extremity [Unknown]
  - Infusion site haemorrhage [Unknown]
  - Urticaria [Unknown]
  - Influenza like illness [Unknown]
  - Fatigue [Unknown]
  - Urinary tract infection [Not Recovered/Not Resolved]
  - Infusion site discharge [Recovered/Resolved]
  - Device infusion issue [Unknown]
  - Malaise [Unknown]

NARRATIVE: CASE EVENT DATE: 20220619
